FAERS Safety Report 15668980 (Version 3)
Quarter: 2019Q1

REPORT INFORMATION
  Report Type: Spontaneous
  Country: JP (occurrence: JP)
  Receive Date: 20181129
  Receipt Date: 20190205
  Transmission Date: 20190417
  Serious: Yes (Other)
  Sender: FDA-Public Use
  Company Number: JP-ASTRAZENECA-2018SF53533

PATIENT
  Age: 69 Year
  Sex: Male

DRUGS (1)
  1. IRESSA [Suspect]
     Active Substance: GEFITINIB
     Indication: LUNG NEOPLASM MALIGNANT
     Route: 048

REACTIONS (1)
  - Lung disorder [Recovered/Resolved]
